FAERS Safety Report 5811583-9 (Version None)
Quarter: 2008Q3

REPORT INFORMATION
  Report Type: 
  Country: None (occurrence: None)
  Receive Date: 20080711
  Receipt Date: 20080711
  Transmission Date: 20090109
  Serious: Yes (Other)
  Sender: FDA-Public Use
  Company Number: None

PATIENT
  Age: 90 Year
  Sex: Female
  Weight: 44.4525 kg

DRUGS (6)
  1. ACTONEL [Suspect]
     Dosage: 35 MG
  2. DICLOFENAC SODIUM [Suspect]
     Dosage: 75 MG
  3. DILTIAZEM HCL [Suspect]
     Dosage: 180 MG
  4. PREMARIN [Suspect]
     Dosage: 0.3 MG
  5. OXYBUTININ ER [Suspect]
     Dosage: 5 MG
  6. SPIRONOLACTONE [Suspect]
     Dosage: 25 MG

REACTIONS (8)
  - ALOPECIA [None]
  - ARTHRALGIA [None]
  - DIZZINESS [None]
  - DRY MOUTH [None]
  - FATIGUE [None]
  - JOINT SWELLING [None]
  - PAIN IN EXTREMITY [None]
  - VISION BLURRED [None]
